APPROVED DRUG PRODUCT: METOCLOPRAMIDE HYDROCHLORIDE
Active Ingredient: METOCLOPRAMIDE HYDROCHLORIDE
Strength: EQ 5MG BASE/ML
Dosage Form/Route: INJECTABLE;INJECTION
Application: A073118 | Product #001 | TE Code: AP
Applicant: HOSPIRA INC
Approved: Jan 17, 1991 | RLD: No | RS: Yes | Type: RX